FAERS Safety Report 4404976-8 (Version None)
Quarter: 2004Q3

REPORT INFORMATION
  Report Type: 
  Country: None (occurrence: None)
  Receive Date: 20040722
  Receipt Date: 20040519
  Transmission Date: 20050211
  Serious: Yes (Life-Threatening, Hospitalization)
  Sender: FDA-Public Use
  Company Number: JP-MERCK-0405USA01623

PATIENT
  Age: 79 Year
  Sex: Male

DRUGS (9)
  1. ALLERGENIC EXTRACT [Suspect]
     Indication: DYSURIA
     Route: 048
     Dates: start: 20030501
  2. INSULIN HUMAN [Concomitant]
     Indication: DIABETES MELLITUS
     Route: 058
     Dates: start: 20020201
  3. INSULIN HUMAN [Concomitant]
     Route: 058
     Dates: start: 20020201
  4. INSULIN HUMAN [Concomitant]
     Route: 058
     Dates: start: 20020201
  5. NIFEDIPINE [Suspect]
     Indication: HYPERTENSION
     Route: 048
     Dates: start: 20030501
  6. ZOCOR [Suspect]
     Indication: HYPERLIPIDAEMIA
     Route: 048
     Dates: start: 19940101, end: 20040430
  7. ZOCOR [Suspect]
     Route: 048
     Dates: start: 20040519, end: 20040101
  8. ZOCOR [Suspect]
     Route: 048
     Dates: start: 20040101
  9. VOGLIBOSE [Suspect]
     Indication: DIABETES MELLITUS
     Route: 048
     Dates: start: 19940101, end: 20040101

REACTIONS (8)
  - CIRCULATORY COLLAPSE [None]
  - DIABETES MELLITUS [None]
  - DYSURIA [None]
  - FALL [None]
  - HYPERTENSION [None]
  - PELVIC NEOPLASM [None]
  - RHABDOMYOLYSIS [None]
  - SUBDURAL HAEMORRHAGE [None]
